FAERS Safety Report 12676193 (Version 1)
Quarter: 2016Q3

REPORT INFORMATION
  Report Type: Other
  Country: FR (occurrence: FR)
  Receive Date: 20160823
  Receipt Date: 20160823
  Transmission Date: 20161109
  Serious: Yes (Hospitalization, Other)
  Sender: FDA-Public Use
  Company Number: FR-APOTEX-2016AP010641

PATIENT
  Age: 33 Year
  Sex: Female

DRUGS (9)
  1. PAXIL [Suspect]
     Active Substance: PAROXETINE HYDROCHLORIDE
     Indication: DEPRESSION
     Dosage: 20 MG, QD
     Route: 048
     Dates: start: 20160105, end: 20160109
  2. BIPROFENID PROLONGED-RELEASE TABLET [Concomitant]
     Dosage: 100 MG, BID
     Route: 048
     Dates: start: 20160105, end: 20160110
  3. RISPERIDONE FILM-COATED TABLET [Concomitant]
     Dosage: 2 MG, QD
     Route: 048
  4. TRIMEBUTINE MALEATE TABLET [Concomitant]
     Dosage: 200 MG, TID
     Route: 048
     Dates: end: 20160105
  5. JANUVIA FILM-COATED TABLET [Concomitant]
     Dosage: 50 MG, QD
     Route: 048
  6. MIANSERINE FILM-COATED TABLET [Concomitant]
     Dosage: 60 MG, QD
     Route: 048
  7. HYDROXYZINE [Concomitant]
     Active Substance: HYDROXYZINE\HYDROXYZINE HYDROCHLORIDE
     Dosage: 50 MG, QD
     Route: 048
  8. LYRICA [Concomitant]
     Active Substance: PREGABALIN
     Dosage: 200 MG, BID
     Route: 048
  9. SERESTA TABLET [Concomitant]
     Dosage: 50 MG, TID
     Route: 048
     Dates: start: 20160105

REACTIONS (2)
  - Urinary retention [Recovered/Resolved]
  - Condition aggravated [Recovered/Resolved]

NARRATIVE: CASE EVENT DATE: 20160105
